FAERS Safety Report 8472364-3 (Version None)
Quarter: 2012Q2

REPORT INFORMATION
  Report Type: 
  Country: None (occurrence: None)
  Receive Date: 20120323
  Receipt Date: 20111214
  Transmission Date: 20120825
  Serious: Yes (Other)
  Sender: FDA-Public Use
  Company Number: 163-21880-11103124

PATIENT
  Sex: Female
  Weight: 96.1626 kg

DRUGS (9)
  1. LEVOTHYROXINE SODIUM [Concomitant]
  2. OMEPRAZOLE [Concomitant]
  3. TRAMADOL HCL [Concomitant]
  4. XANAX [Concomitant]
  5. GLIPIZIDE (ER (GLIPIZIDE) [Concomitant]
  6. DEXAMETHASONE [Concomitant]
  7. COUMADIN [Concomitant]
  8. DOXYCYCLINE [Concomitant]
  9. REVLIMID [Suspect]
     Indication: MULTIPLE MYELOMA
     Dosage: 5 MG, DALY, PO
     Route: 048
     Dates: start: 20061101, end: 20111001

REACTIONS (1)
  - BONE MARROW FAILURE [None]
